FAERS Safety Report 8499733-X (Version None)
Quarter: 2012Q2

REPORT INFORMATION
  Report Type: 
  Country: None (occurrence: None)
  Receive Date: 20120629
  Receipt Date: 20120607
  Transmission Date: 20120825
  Serious: Yes (Hospitalization)
  Sender: FDA-Public Use
  Company Number: 2012-00888

PATIENT
  Age: 80 Year
  Sex: Male
  Weight: 70 kg

DRUGS (6)
  1. FUSIDIC ACID [Suspect]
     Indication: LOCALISED INFECTION
     Dosage: 500 MG (250 MG, 2 IN 1 D), ORAL
     Route: 048
     Dates: start: 20120413, end: 20120513
  2. CILOSTAZOL [Concomitant]
  3. NICORANDIL [Concomitant]
  4. OMEPRAZOLE [Concomitant]
  5. FLUCLOXACILLIN [Concomitant]
  6. SIMVASTATIN [Suspect]
     Indication: BLOOD CHOLESTEROL INCREASED
     Dosage: 80 MG (40 MG, 2 IN 1 D), ORAL
     Route: 048
     Dates: start: 20120220, end: 20120513

REACTIONS (5)
  - BLOOD CREATINE PHOSPHOKINASE INCREASED [None]
  - DRUG INTERACTION [None]
  - RHABDOMYOLYSIS [None]
  - PAIN IN EXTREMITY [None]
  - ASTHENIA [None]
